FAERS Safety Report 16207458 (Version 1)
Quarter: 2019Q2

REPORT INFORMATION
  Report Type: Spontaneous
  Country: US (occurrence: US)
  Receive Date: 20190417
  Receipt Date: 20190417
  Transmission Date: 20190711
  Serious: No
  Sender: FDA-Public Use
  Company Number: US-PFIZER INC-2019155372

PATIENT
  Age: 43 Year
  Sex: Female

DRUGS (1)
  1. IBRANCE [Suspect]
     Active Substance: PALBOCICLIB
     Dosage: UNK UNK, CYCLIC (21-DAY CYCLE)
     Dates: start: 201608, end: 20190331

REACTIONS (5)
  - Dizziness [Unknown]
  - Fatigue [Unknown]
  - Feeling abnormal [Unknown]
  - Full blood count decreased [Unknown]
  - Nausea [Unknown]
